FAERS Safety Report 7053762-1 (Version None)
Quarter: 2010Q4

REPORT INFORMATION
  Report Type: 
  Country: None (occurrence: None)
  Receive Date: 20101020
  Receipt Date: 20101012
  Transmission Date: 20110411
  Serious: Yes (Hospitalization)
  Sender: FDA-Public Use
  Company Number: A0887483A

PATIENT
  Age: 56 Year
  Sex: Female

DRUGS (1)
  1. VENTOLIN [Suspect]
     Indication: PRODUCT USED FOR UNKNOWN INDICATION
     Route: 065
     Dates: start: 20081226

REACTIONS (3)
  - CONDITION AGGRAVATED [None]
  - LUNG DISORDER [None]
  - MYOCARDIAL INFARCTION [None]
